FAERS Safety Report 4465933-9 (Version None)
Quarter: 2004Q4

REPORT INFORMATION
  Report Type: 
  Country: None (occurrence: None)
  Receive Date: 20041005
  Receipt Date: 20040928
  Transmission Date: 20050328
  Serious: Yes (Hospitalization, Other)
  Sender: FDA-Public Use
  Company Number: US-JNJFOC-20040401422

PATIENT
  Sex: Male

DRUGS (7)
  1. DURAGESIC [Suspect]
     Route: 062
  2. DURAGESIC [Suspect]
     Route: 062
  3. DURAGESIC [Suspect]
     Route: 062
  4. DURAGESIC [Suspect]
     Route: 062
  5. NEURONTIN [Concomitant]
     Route: 049
  6. SKELAXIN [Concomitant]
     Route: 049
  7. KLONOPIN [Concomitant]
     Indication: SLEEP DISORDER THERAPY
     Dosage: TAKES ONE IN AM AND TWO IN PM
     Route: 049

REACTIONS (33)
  - ANGINA UNSTABLE [None]
  - ANOREXIA [None]
  - ARTHRALGIA [None]
  - ATELECTASIS [None]
  - BACK PAIN [None]
  - CHEST PAIN [None]
  - COMMINUTED FRACTURE [None]
  - DIARRHOEA [None]
  - DIZZINESS [None]
  - DYSPNOEA [None]
  - EPICONDYLITIS [None]
  - FATIGUE [None]
  - HEADACHE [None]
  - HUMERUS FRACTURE [None]
  - HYPERTENSION [None]
  - HYPOACUSIS [None]
  - JOINT STIFFNESS [None]
  - MEDICATION ERROR [None]
  - MYALGIA [None]
  - NASAL CONGESTION [None]
  - NAUSEA [None]
  - NERVOUSNESS [None]
  - PAIN IN EXTREMITY [None]
  - PALPITATIONS [None]
  - PHARMACEUTICAL PRODUCT COMPLAINT [None]
  - PHARYNGITIS [None]
  - PHARYNGOLARYNGEAL PAIN [None]
  - PYREXIA [None]
  - RADICULOPATHY [None]
  - SCAN MYOCARDIAL PERFUSION ABNORMAL [None]
  - TREMOR [None]
  - VISION BLURRED [None]
  - VOMITING [None]
